FAERS Safety Report 23294064 (Version 1)
Quarter: 2023Q4

REPORT INFORMATION
  Report Type: Report from Study
  Country: ES (occurrence: ES)
  Receive Date: 20231213
  Receipt Date: 20231213
  Transmission Date: 20240110
  Serious: Yes (Other)
  Sender: FDA-Public Use
  Company Number: ES-NAPPMUNDI-GBR-2023-0112962

PATIENT

DRUGS (1)
  1. MORPHINE SULFATE [Suspect]
     Active Substance: MORPHINE SULFATE
     Indication: Pulmonary oedema
     Dosage: UNK
     Route: 042

REACTIONS (2)
  - Pneumonia [Unknown]
  - Pneumonitis aspiration [Unknown]
